FAERS Safety Report 10509432 (Version 5)
Quarter: 2015Q1

REPORT INFORMATION
  Report Type: Report from Study
  Country: FR (occurrence: FR)
  Receive Date: 20141009
  Receipt Date: 20150130
  Transmission Date: 20150720
  Serious: Yes (Death, Hospitalization)
  Sender: FDA-Public Use
  Company Number: FR-JNJFOC-20141002523

PATIENT
  Age: 77 Year
  Sex: Male
  Weight: 73 kg

DRUGS (13)
  1. CORDARONE [Concomitant]
     Active Substance: AMIODARONE HYDROCHLORIDE
     Dosage: 200 /DAY
     Route: 048
  2. IBRUTINIB [Suspect]
     Active Substance: IBRUTINIB
     Indication: CHRONIC LYMPHOCYTIC LEUKAEMIA
     Route: 048
     Dates: start: 201402, end: 20140823
  3. RECOMBINANT HUMAN GRANULOCYTE COLONY-STIMULATING FACTOR (RHG-CSF) [Suspect]
     Active Substance: GRANULOCYTE COLONY-STIMULATING FACTOR NOS
     Indication: GRANULOCYTOPENIA
     Route: 058
     Dates: end: 20140929
  4. SECTRAL [Concomitant]
     Active Substance: ACEBUTOLOL HYDROCHLORIDE
  5. LASILIX [Concomitant]
     Active Substance: FUROSEMIDE
  6. SPIRIVA [Concomitant]
     Active Substance: TIOTROPIUM BROMIDE MONOHYDRATE
  7. IBRUTINIB [Suspect]
     Active Substance: IBRUTINIB
     Indication: CHRONIC LYMPHOCYTIC LEUKAEMIA
     Route: 048
     Dates: end: 20141001
  8. ZYLORIC [Concomitant]
     Active Substance: ALLOPURINOL
     Dosage: 200/DAY
     Route: 048
  9. AVODART [Concomitant]
     Active Substance: DUTASTERIDE
  10. INNOVAIR [Concomitant]
     Active Substance: BECLOMETHASONE DIPROPIONATE\FORMOTEROL
  11. XATRAL [Concomitant]
     Active Substance: ALFUZOSIN
     Dosage: 2.5/DAY
     Route: 048
  12. PRADAXA [Concomitant]
     Active Substance: DABIGATRAN ETEXILATE MESYLATE
  13. CARDENSIEL [Concomitant]
     Active Substance: BISOPROLOL FUMARATE
     Dosage: 2.5/DAY
     Route: 048

REACTIONS (7)
  - Pneumonia pseudomonal [Fatal]
  - Multi-organ failure [Fatal]
  - Septic shock [Fatal]
  - Lung infection [Fatal]
  - Cardiac failure [Not Recovered/Not Resolved]
  - Acute respiratory distress syndrome [Fatal]
  - Acute kidney injury [Fatal]

NARRATIVE: CASE EVENT DATE: 201408
